FAERS Safety Report 12217855 (Version 1)
Quarter: 2016Q1

REPORT INFORMATION
  Report Type: Spontaneous
  Country: US (occurrence: US)
  Receive Date: 20160329
  Receipt Date: 20160329
  Transmission Date: 20160526
  Serious: No
  Sender: FDA-Public Use
  Company Number: US-BAUSCH-BL-2016-004797

PATIENT
  Sex: Female

DRUGS (5)
  1. ASTATIN /01326102/ [Suspect]
     Active Substance: ATORVASTATIN CALCIUM
     Indication: STENT PLACEMENT
     Route: 048
     Dates: start: 200704
  2. VERAPAMIL [Concomitant]
     Active Substance: VERAPAMIL HYDROCHLORIDE
     Indication: HYPERTENSION
     Route: 048
     Dates: start: 200704
  3. VITAMIN E [Concomitant]
     Active Substance: .ALPHA.-TOCOPHEROL
     Indication: SUPPLEMENTATION THERAPY
     Route: 048
     Dates: start: 200704
  4. BABY ASPIRIN [Concomitant]
     Active Substance: ASPIRIN
     Indication: STENT PLACEMENT
     Route: 048
     Dates: start: 200704
  5. JUBLIA [Suspect]
     Active Substance: EFINACONAZOLE
     Indication: ONYCHOMYCOSIS
     Dosage: TO THE RIGHT BIG TOE
     Route: 061
     Dates: start: 201503

REACTIONS (1)
  - Drug ineffective [Unknown]
